FAERS Safety Report 23877894 (Version 1)
Quarter: 2024Q2

REPORT INFORMATION
  Report Type: Spontaneous
  Country: BE (occurrence: BE)
  Receive Date: 20240521
  Receipt Date: 20240521
  Transmission Date: 20240716
  Serious: Yes (Hospitalization)
  Sender: FDA-Public Use
  Company Number: BE-AMGEN-BELSP2024096866

PATIENT
  Age: 58 Year
  Sex: Female

DRUGS (1)
  1. ADALIMUMAB [Suspect]
     Active Substance: ADALIMUMAB\ISOPROPYL ALCOHOL
     Indication: Crohn^s disease
     Dosage: UNK
     Route: 058

REACTIONS (5)
  - Mycobacterium tuberculosis complex test positive [Unknown]
  - Gingivitis ulcerative [Recovering/Resolving]
  - Weight decreased [Unknown]
  - Granuloma [Unknown]
  - Lymphadenopathy [Unknown]
